FAERS Safety Report 6103748-6 (Version None)
Quarter: 2009Q1

REPORT INFORMATION
  Report Type: 
  Country: None (occurrence: None)
  Receive Date: 20090227
  Receipt Date: 20080124
  Transmission Date: 20090719
  Serious: Yes (Other)
  Sender: FDA-Public Use
  Company Number: 433882

PATIENT
  Age: 19 Year
  Sex: Female
  Weight: 54.4 kg

DRUGS (11)
  1. ACCUTANE [Suspect]
     Indication: ACNE
     Dosage: ORAL
     Route: 048
     Dates: start: 20030204, end: 20040101
  2. AMNESTEEM [Suspect]
     Indication: ACNE
     Dosage: ORAL
     Route: 048
  3. BENZAMYCIN (BENZOYL PEROXIDE/ERYTHROMYCIN) [Concomitant]
  4. CLEOCIN T (CLINDAMYCIN) [Concomitant]
  5. NEUTROGEN OIL-FREE ACNE WASH (ALOE VERA/EDETIC ACID/PROPYLENE GLYCOL/S [Concomitant]
  6. AZELEX (AZELAIC ACID) [Concomitant]
  7. TETRACYCLIN (TETRACYLINE) [Concomitant]
  8. DIFFERIN [Concomitant]
  9. DOXYCYCLIN (DOXYCYCLINE) [Concomitant]
  10. MINOCIN [Concomitant]
  11. SPIRONOLACTONE [Concomitant]

REACTIONS (8)
  - ABDOMINAL PAIN [None]
  - COLITIS [None]
  - DEPRESSION [None]
  - HEADACHE [None]
  - INFLAMMATORY BOWEL DISEASE [None]
  - LIP DRY [None]
  - NAUSEA [None]
  - URINARY TRACT INFECTION [None]
